FAERS Safety Report 14744225 (Version 1)
Quarter: 2018Q2

REPORT INFORMATION
  Report Type: Spontaneous
  Country: US (occurrence: US)
  Receive Date: 20180405
  Receipt Date: 20180405
  Transmission Date: 20180711
  Serious: Yes (Hospitalization)
  Sender: FDA-Public Use
  Company Number: None

PATIENT
  Age: 71 Year
  Sex: Female

DRUGS (7)
  1. LONSURF [Suspect]
     Active Substance: TIPIRACIL HYDROCHLORIDE\TRIFLURIDINE
     Indication: NEOPLASM MALIGNANT
     Dosage: ?          OTHER DOSE:14-6.14MG X 2;OTHER FREQUENCY:QAM;?
     Route: 048
     Dates: start: 20160602
  2. ENOXAPRIN [Concomitant]
  3. LISINOPRIL. [Concomitant]
     Active Substance: LISINOPRIL
  4. CEFDINIR. [Concomitant]
     Active Substance: CEFDINIR
  5. LONSURF [Suspect]
     Active Substance: TIPIRACIL HYDROCHLORIDE\TRIFLURIDINE
     Indication: NEOPLASM MALIGNANT
     Dosage: ?          OTHER DOSE:20-8.19MG X 2;?
     Route: 048
     Dates: start: 20160602
  6. PATOPRAZOLE [Concomitant]
  7. AXITHROMYCIN [Concomitant]

REACTIONS (1)
  - Thrombosis [None]

NARRATIVE: CASE EVENT DATE: 20180402
